FAERS Safety Report 9206880 (Version 2)
Quarter: 2013Q2

REPORT INFORMATION
  Report Type: Spontaneous
  Country: US (occurrence: US)
  Receive Date: 20130403
  Receipt Date: 20130521
  Transmission Date: 20140414
  Serious: Yes (Hospitalization)
  Sender: FDA-Public Use
  Company Number: US-B.I. PHARMACEUTICALS,INC./RIDGEFIELD-2013-BI-08496BP

PATIENT
  Sex: Female

DRUGS (11)
  1. MICARDIS [Suspect]
     Indication: HYPERTENSION
     Dosage: 80 MG
     Route: 048
  2. CENTRUM [Concomitant]
     Indication: SUPPLEMENTATION THERAPY
     Route: 048
  3. BYSTOLIC [Concomitant]
     Indication: HYPERTENSION
     Dosage: 10 MG
     Route: 048
  4. LEVOTHYROXINE [Concomitant]
     Indication: HYPOTHYROIDISM
     Dosage: 100 MCG
     Route: 048
  5. HUMALOG [Concomitant]
     Indication: DIABETES MELLITUS
     Dosage: STRENGTH: U-500; DAILY DOSE: U-500
     Route: 058
  6. INSULIN [Concomitant]
     Indication: DIABETES MELLITUS
     Dosage: STRENGTH: 15 UNITS; DAILY DOSE: 30 UNITS
     Route: 058
  7. LOVAZA [Concomitant]
     Indication: BLOOD CHOLESTEROL INCREASED
     Route: 048
  8. LOVAZA [Concomitant]
     Indication: BLOOD TRIGLYCERIDES INCREASED
  9. LAMICTAL [Concomitant]
     Indication: DEPRESSION
     Dosage: 200 MG
     Route: 048
  10. PROTRIPTYLINE [Concomitant]
     Indication: DEPRESSION
     Dosage: 40 MG
     Route: 048
  11. METFORMIN EXTENDED RELEASE [Concomitant]
     Indication: DIABETES MELLITUS
     Dosage: 1000 MG
     Route: 048

REACTIONS (3)
  - Infected skin ulcer [Not Recovered/Not Resolved]
  - Diabetic foot [Not Recovered/Not Resolved]
  - Pain in extremity [Not Recovered/Not Resolved]
